FAERS Safety Report 9223328 (Version 2)
Quarter: 2013Q2

REPORT INFORMATION
  Report Type: Report from Study
  Country: IT (occurrence: IT)
  Receive Date: 20130410
  Receipt Date: 20130417
  Transmission Date: 20140414
  Serious: Yes (Other)
  Sender: FDA-Public Use
  Company Number: IT-PFIZER INC-2013100263

PATIENT
  Age: 11 Year
  Sex: Female
  Weight: 28.8 kg

DRUGS (11)
  1. SUTENT [Suspect]
     Indication: MEDULLARY THYROID CANCER
     Dosage: 12.5 MG, 1X/DAY
     Dates: start: 20120802, end: 20120829
  2. SUTENT [Suspect]
     Dosage: 25 MG, 1X/DAY
     Dates: start: 20120911, end: 20120926
  3. SUTENT [Suspect]
     Dosage: 25 MG DAILY ALTERNATE WITH 50 MG DAILY
     Dates: start: 20120927, end: 20121010
  4. SUTENT [Suspect]
     Dosage: 25 MG, 1X/DAY
     Dates: start: 20121025, end: 20121122
  5. SUTENT [Suspect]
     Dosage: 25 MG DAILY ALTERNATE WITH 50 MG DAILY
     Dates: start: 20121206, end: 20130103
  6. SUTENT [Suspect]
     Dosage: 25 MG DAILY ALTERNATE WITH 50 MG DAILY
     Dates: start: 20130117, end: 20130209
  7. SUTENT [Suspect]
     Dosage: 25 MG DAILY ALTERNATE WITH 50 MG DAILY
     Route: 048
     Dates: start: 20130224, end: 20130323
  8. EUTIROX [Concomitant]
     Indication: HYPOTHYROIDISM
     Dosage: 62.5 UG, 1X/DAY
     Route: 048
     Dates: start: 20120802
  9. CALCIUM CARBONATE [Concomitant]
     Dosage: 400 MG, 3X/DAY
     Dates: start: 20130103
  10. ROCALTROL [Concomitant]
     Dosage: 0.25 UG, 1X/DAY
     Route: 048
  11. CARDURA [Concomitant]
     Indication: HYPERTENSION
     Dosage: 0.50 MG, 1X/DAY
     Dates: start: 20120802

REACTIONS (21)
  - Face oedema [Recovered/Resolved]
  - Face oedema [Recovered/Resolved]
  - Face oedema [Recovered/Resolved]
  - Asthenia [Recovered/Resolved]
  - Asthenia [Unknown]
  - Bone pain [Unknown]
  - Flatulence [Unknown]
  - Drooling [Unknown]
  - Cough [Unknown]
  - Syncope [Unknown]
  - Abdominal pain [Unknown]
  - Gingival pain [Unknown]
  - Bone pain [Unknown]
  - Diarrhoea [Unknown]
  - Pain in extremity [Unknown]
  - Constipation [Unknown]
  - Haemorrhoids [Unknown]
  - Back pain [Recovered/Resolved]
  - Back pain [Recovered/Resolved]
  - Pain [Recovered/Resolved]
  - Pain [Recovered/Resolved]
